FAERS Safety Report 14311979 (Version 1)
Quarter: 2017Q4

REPORT INFORMATION
  Report Type: Spontaneous
  Country: US (occurrence: US)
  Receive Date: 20171221
  Receipt Date: 20171221
  Transmission Date: 20180321
  Serious: No
  Sender: FDA-Public Use
  Company Number: PHEH2017US040407

PATIENT
  Sex: Female
  Weight: 75 kg

DRUGS (1)
  1. NEO AND POLY B SULFATES + HYDROCORTISONE [Suspect]
     Active Substance: BACITRACIN\NEOMYCIN\POLYMYXIN B
     Indication: EAR INFECTION
     Dosage: 4 GTT, QID
     Route: 001
     Dates: start: 20171201, end: 20171206

REACTIONS (4)
  - Burning sensation [Recovering/Resolving]
  - Wound [Recovering/Resolving]
  - Skin exfoliation [Recovering/Resolving]
  - General physical health deterioration [Recovering/Resolving]
